FAERS Safety Report 5216151-8 (Version None)
Quarter: 2007Q1

REPORT INFORMATION
  Report Type: 
  Country: None (occurrence: None)
  Receive Date: 20070123
  Receipt Date: 20070111
  Transmission Date: 20070707
  Serious: Yes (Hospitalization)
  Sender: FDA-Public Use
  Company Number: AU-PFIZER INC-2006093507

PATIENT
  Sex: Male
  Weight: 118 kg

DRUGS (5)
  1. SU-011,248 [Suspect]
     Indication: METASTATIC RENAL CELL CARCINOMA
     Route: 048
  2. NORVASC [Concomitant]
     Route: 048
  3. ASPIRIN [Concomitant]
     Route: 048
     Dates: start: 19991001
  4. GLYADE [Concomitant]
     Route: 048
     Dates: start: 19991001
  5. METFORMIN HCL [Concomitant]
     Route: 048
     Dates: start: 19991001

REACTIONS (1)
  - LEFT VENTRICULAR FAILURE [None]
